FAERS Safety Report 12730360 (Version 2)
Quarter: 2016Q4

REPORT INFORMATION
  Report Type: Spontaneous
  Country: GR (occurrence: GR)
  Receive Date: 20160909
  Receipt Date: 20161020
  Transmission Date: 20170207
  Serious: Yes (Other)
  Sender: FDA-Public Use
  Company Number: GR-GLAXOSMITHKLINE-GR2016GSK131383

PATIENT
  Age: 52 Year
  Sex: Female

DRUGS (1)
  1. IMIGRAN [Suspect]
     Active Substance: SUMATRIPTAN SUCCINATE
     Indication: MIGRAINE
     Dosage: 50 MG, UNK
     Dates: end: 201607

REACTIONS (2)
  - Brain neoplasm [Recovered/Resolved]
  - Central nervous system lymphoma [Unknown]

NARRATIVE: CASE EVENT DATE: 20160801
